FAERS Safety Report 4722617-7 (Version None)
Quarter: 2005Q3

REPORT INFORMATION
  Report Type: 
  Country: None (occurrence: None)
  Receive Date: 20050722
  Receipt Date: 20050714
  Transmission Date: 20060218
  Serious: Yes (Hospitalization)
  Sender: FDA-Public Use
  Company Number: GB-BRISTOL-MYERS SQUIBB COMPANY-13040266

PATIENT
  Age: 46 Year
  Sex: Female

DRUGS (4)
  1. ABILIFY [Suspect]
     Indication: SCHIZOPHRENIA
     Route: 048
     Dates: start: 20040801
  2. CARBAMAZEPINE [Concomitant]
  3. SULPIRIDE [Concomitant]
  4. OLANZAPINE [Concomitant]

REACTIONS (5)
  - ILLUSION [None]
  - INSOMNIA [None]
  - NAUSEA [None]
  - ORAL INFECTION [None]
  - VOMITING [None]
